FAERS Safety Report 5424754-0 (Version None)
Quarter: 2007Q3

REPORT INFORMATION
  Report Type: 
  Country: None (occurrence: None)
  Receive Date: 20070822
  Receipt Date: 20070809
  Transmission Date: 20080115
  Serious: Yes (Other)
  Sender: FDA-Public Use
  Company Number: 2007-162703-NL

PATIENT
  Age: 20 Year
  Sex: Female

DRUGS (1)
  1. NUVARING [Suspect]
     Indication: HORMONE LEVEL ABNORMAL
     Dosage: VAGINAL, 3 WEEKS IN, 1 WEEK OUT
     Route: 067
     Dates: end: 20070808

REACTIONS (3)
  - CONTRACEPTIVE DEVICE COMPLICATION [None]
  - HAEMORRHAGE [None]
  - INFLUENZA LIKE ILLNESS [None]
